FAERS Safety Report 20705068 (Version 1)
Quarter: 2022Q2

REPORT INFORMATION
  Report Type: Spontaneous
  Country: US (occurrence: None)
  Receive Date: 20220412
  Receipt Date: 20220412
  Transmission Date: 20220721
  Serious: Yes (Other)
  Sender: FDA-Public Use
  Company Number: None

PATIENT
  Age: 70 Year
  Sex: Female
  Weight: 65.25 kg

DRUGS (10)
  1. IMITREX STATDOSE [Suspect]
     Active Substance: SUMATRIPTAN SUCCINATE
     Indication: Migraine
     Dosage: OTHER QUANTITY : 1 INJECTION(S);?FREQUENCY : AT BEDTIME;?
     Route: 030
     Dates: start: 20220201
  2. TRAZODONE [Concomitant]
  3. IMITREX [Concomitant]
  4. CARVEDIOLOL [Concomitant]
  5. BENADRYL [Concomitant]
     Active Substance: DIPHENHYDRAMINE HYDROCHLORIDE
  6. CALTRATE [Concomitant]
  7. D [Concomitant]
  8. MAGNESIUM [Concomitant]
     Active Substance: MAGNESIUM
  9. POTASSIUM [Concomitant]
  10. B12 VIAMINS [Concomitant]

REACTIONS (7)
  - Product packaging quantity issue [None]
  - Product quality issue [None]
  - Drug ineffective [None]
  - Pain [None]
  - Blood pressure increased [None]
  - Illness [None]
  - Product measured potency issue [None]

NARRATIVE: CASE EVENT DATE: 20220201
